FAERS Safety Report 21094546 (Version 1)
Quarter: 2022Q3

REPORT INFORMATION
  Report Type: Spontaneous
  Country: US (occurrence: None)
  Receive Date: 20220715
  Receipt Date: 20220715
  Transmission Date: 20221027
  Serious: No
  Sender: FDA-Public Use
  Company Number: None

PATIENT
  Sex: Male

DRUGS (1)
  1. ACTEMRA [Suspect]
     Active Substance: TOCILIZUMAB

REACTIONS (7)
  - Condition aggravated [None]
  - Gastrointestinal disorder [None]
  - Drug intolerance [None]
  - Abdominal pain [None]
  - Nausea [None]
  - Abnormal faeces [None]
  - Pain [None]
